FAERS Safety Report 6263200-4 (Version None)
Quarter: 2009Q3

REPORT INFORMATION
  Report Type: 
  Country: None (occurrence: None)
  Receive Date: 20090710
  Receipt Date: 20090706
  Transmission Date: 20100115
  Serious: Yes (Death)
  Sender: FDA-Public Use
  Company Number: US-BRISTOL-MYERS SQUIBB COMPANY-14692818

PATIENT
  Age: 30 Year
  Sex: Female

DRUGS (4)
  1. ABILIFY [Suspect]
  2. GEODON [Suspect]
     Dates: start: 20081001
  3. TRAMADOL [Suspect]
  4. ZOLPIDEM [Suspect]

REACTIONS (1)
  - MYOCARDIAL INFARCTION [None]
